FAERS Safety Report 6794723-7 (Version None)
Quarter: 2010Q2

REPORT INFORMATION
  Report Type: 
  Country: None (occurrence: None)
  Receive Date: 20100625
  Receipt Date: 20100614
  Transmission Date: 20101027
  Serious: No
  Sender: FDA-Public Use
  Company Number: US-B.I. PHARMACEUTICALS,INC./RIDGEFIELD-2010-BP-01271BP

PATIENT
  Sex: Male
  Weight: 59.87 kg

DRUGS (2)
  1. MIRAPEX [Suspect]
     Indication: PARKINSON'S DISEASE
     Route: 048
     Dates: start: 19970701
  2. MIRAPEX [Suspect]
     Indication: RESTLESS LEGS SYNDROME

REACTIONS (8)
  - COMPULSIVE SHOPPING [None]
  - DEPRESSION [None]
  - EMOTIONAL DISTRESS [None]
  - HYPERPHAGIA [None]
  - HYPERSEXUALITY [None]
  - OBSESSIVE-COMPULSIVE DISORDER [None]
  - PAIN [None]
  - PATHOLOGICAL GAMBLING [None]
